FAERS Safety Report 7901258-4 (Version None)
Quarter: 2011Q4

REPORT INFORMATION
  Report Type: 
  Country: None (occurrence: None)
  Receive Date: 20111108
  Receipt Date: 20111102
  Transmission Date: 20120403
  Serious: Yes (Other)
  Sender: FDA-Public Use
  Company Number: PHHY2011MX59483

PATIENT
  Age: 68 Year
  Sex: Female

DRUGS (1)
  1. ZOLEDRONOC ACID [Suspect]
     Indication: OSTEOPOROSIS
     Dosage: 5 MG,/100 ML
     Route: 042
     Dates: start: 20101102

REACTIONS (6)
  - SHOCK [None]
  - JAW DISORDER [None]
  - MUSCULOSKELETAL STIFFNESS [None]
  - PALLOR [None]
  - FEELING COLD [None]
  - TREMOR [None]
